FAERS Safety Report 9369358 (Version 1)
Quarter: 2013Q2

REPORT INFORMATION
  Report Type: Spontaneous
  Country: FR (occurrence: FR)
  Receive Date: 20130626
  Receipt Date: 20130626
  Transmission Date: 20140414
  Serious: Yes (Other)
  Sender: FDA-Public Use
  Company Number: FR-ROCHE-1228238

PATIENT
  Age: 63 Year
  Sex: Female
  Weight: 90 kg

DRUGS (9)
  1. ROACTEMRA [Suspect]
     Indication: RHEUMATOID ARTHRITIS
     Dosage: 8 MG/KG
     Route: 041
     Dates: start: 20101007
  2. ROACTEMRA [Suspect]
     Dosage: 4 MG/KG
     Route: 041
     Dates: start: 20101203, end: 20101210
  3. ROACTEMRA [Suspect]
     Route: 042
     Dates: start: 20110317
  4. ROACTEMRA [Suspect]
     Route: 042
     Dates: start: 20100217
  5. ROACTEMRA [Suspect]
     Route: 042
     Dates: start: 20100517
  6. ROACTEMRA [Suspect]
     Route: 042
     Dates: start: 20101103
  7. METHOTREXATE [Suspect]
     Indication: RHEUMATOID ARTHRITIS
     Route: 048
     Dates: start: 1996, end: 20101007
  8. METHOTREXATE [Suspect]
     Route: 048
     Dates: end: 201112
  9. METHOTREXATE [Suspect]
     Route: 048
     Dates: start: 20110317, end: 20111223

REACTIONS (1)
  - Hepatocellular injury [Not Recovered/Not Resolved]
